FAERS Safety Report 6010805-1 (Version None)
Quarter: 2008Q4

REPORT INFORMATION
  Report Type: 
  Country: None (occurrence: None)
  Receive Date: 20081218
  Receipt Date: 20081215
  Transmission Date: 20090506
  Serious: Yes (Death, Other)
  Sender: FDA-Public Use
  Company Number: PHBS2008GB06672

PATIENT
  Age: 24 Month
  Sex: Female

DRUGS (6)
  1. CYCLOSPORINE [Suspect]
     Indication: STEM CELL TRANSPLANT
  2. MYCOPHENOLATE MOFETIL [Concomitant]
  3. FLUDARABINE PHOSPHATE [Concomitant]
  4. TREOSULFAN [Concomitant]
  5. ALEMTUZUMAB [Concomitant]
  6. LARONIDASE [Concomitant]
     Indication: STEM CELL TRANSPLANT

REACTIONS (2)
  - GRAFT VERSUS HOST DISEASE [None]
  - TRANSPLANT REJECTION [None]
